FAERS Safety Report 7681548-3 (Version None)
Quarter: 2011Q3

REPORT INFORMATION
  Report Type: 
  Country: None (occurrence: None)
  Receive Date: 20110812
  Receipt Date: 20110809
  Transmission Date: 20111222
  Serious: Yes (Death, Other)
  Sender: FDA-Public Use
  Company Number: PHHY2011BE72051

PATIENT
  Age: 49 Year
  Sex: Male

DRUGS (4)
  1. MYCOPHENOLATE MOFETIL [Concomitant]
  2. CYCLOSPORINE [Suspect]
     Indication: RENAL TRANSPLANT
  3. AZATHIOPRINE [Concomitant]
     Dosage: 150 MG,DAILY
  4. PREDNISOLONE [Concomitant]
     Dosage: 7.5 MG, DAILY

REACTIONS (6)
  - ENTERITIS [None]
  - MUCOCUTANEOUS LEISHMANIASIS [None]
  - ORAL PAIN [None]
  - TONGUE ULCERATION [None]
  - PNEUMONIA [None]
  - VISCERAL LEISHMANIASIS [None]
